FAERS Safety Report 8169357-2 (Version None)
Quarter: 2012Q1

REPORT INFORMATION
  Report Type: 
  Country: None (occurrence: None)
  Receive Date: 20120222
  Receipt Date: 20120210
  Transmission Date: 20120608
  Serious: Yes (Other)
  Sender: FDA-Public Use
  Company Number: FR-SEPTODONT-201200343

PATIENT
  Age: 31 Year
  Sex: Male
  Weight: 80 kg

DRUGS (1)
  1. SEPTOCAINE [Suspect]
     Indication: LOCAL ANAESTHESIA
     Dosage: 1/2 CARTRIDGE DENTAL
     Route: 004
     Dates: start: 20120103

REACTIONS (3)
  - PRESYNCOPE [None]
  - INJECTION SITE INFLAMMATION [None]
  - LOSS OF CONSCIOUSNESS [None]
